FAERS Safety Report 25933001 (Version 1)
Quarter: 2025Q4

REPORT INFORMATION
  Report Type: Spontaneous
  Country: US (occurrence: US)
  Receive Date: 20251017
  Receipt Date: 20251017
  Transmission Date: 20260117
  Serious: No
  Sender: UPSHER SMITH LABORATORIES
  Company Number: US-UPSHER-SMITH LABORATORIES, LLC-20250901248

PATIENT
  Age: 8 Year
  Sex: Male

DRUGS (1)
  1. VIGADRONE [Suspect]
     Active Substance: VIGABATRIN
     Indication: Focal dyscognitive seizures
     Dosage: 1500 MG, QD, 500 MG (1 TABLET) BY MOUTH IN THE MORNING AND 1000 MG (2 TABLETS)
     Route: 048
     Dates: start: 20250320

REACTIONS (1)
  - Blister [Unknown]

NARRATIVE: CASE EVENT DATE: 20250921
